FAERS Safety Report 7629631-2 (Version None)
Quarter: 2011Q3

REPORT INFORMATION
  Report Type: 
  Country: None (occurrence: None)
  Receive Date: 20110722
  Receipt Date: 20110714
  Transmission Date: 20111222
  Serious: Yes (Hospitalization, Other)
  Sender: FDA-Public Use
  Company Number: FR-JNJFOC-20110502735

PATIENT
  Age: 63 Year
  Sex: Female
  Weight: 66 kg

DRUGS (3)
  1. RISPERDAL CONSTA [Suspect]
     Indication: PRODUCT USED FOR UNKNOWN INDICATION
     Route: 030
  2. RISPERDAL CONSTA [Suspect]
     Route: 030
     Dates: start: 20110712
  3. HALDOL [Suspect]
     Indication: PRODUCT USED FOR UNKNOWN INDICATION
     Route: 065

REACTIONS (14)
  - CARDIAC MURMUR [None]
  - TACHYCARDIA [None]
  - FATIGUE [None]
  - DELIRIUM [None]
  - WEIGHT INCREASED [None]
  - MYALGIA [None]
  - HOSPITALISATION [None]
  - INCORRECT ROUTE OF DRUG ADMINISTRATION [None]
  - TORTICOLLIS [None]
  - VISUAL ACUITY REDUCED [None]
  - INCOHERENT [None]
  - MUSCLE RIGIDITY [None]
  - ASTHENIA [None]
  - RASH [None]
